FAERS Safety Report 21795407 (Version 1)
Quarter: 2022Q4

REPORT INFORMATION
  Report Type: Spontaneous
  Country: US (occurrence: US)
  Receive Date: 20221229
  Receipt Date: 20221229
  Transmission Date: 20230113
  Serious: Yes (Death, Other)
  Sender: FDA-Public Use
  Company Number: US-INCYTE CORPORATION-2022IN012734

PATIENT

DRUGS (1)
  1. JAKAFI [Suspect]
     Active Substance: RUXOLITINIB
     Indication: Breast cancer
     Dosage: 10 MILLIGRAM, BID (1 TABLET IN THE AM AND 1 TABLET IN THE PM)
     Route: 048
     Dates: start: 20220711

REACTIONS (2)
  - Death [Fatal]
  - Off label use [Unknown]
